FAERS Safety Report 25271008 (Version 2)
Quarter: 2025Q3

REPORT INFORMATION
  Report Type: Spontaneous
  Country: TR (occurrence: TR)
  Receive Date: 20250506
  Receipt Date: 20250714
  Transmission Date: 20251020
  Serious: Yes (Other)
  Sender: JOHNSON AND JOHNSON
  Company Number: TR-JNJFOC-20250441449

PATIENT
  Age: 48 Year
  Sex: Male

DRUGS (2)
  1. TREMFYA [Suspect]
     Active Substance: GUSELKUMAB
     Indication: Arthritis
     Route: 058
     Dates: start: 202305
  2. TREMFYA [Suspect]
     Active Substance: GUSELKUMAB

REACTIONS (2)
  - Necrosis [Unknown]
  - Arthralgia [Unknown]
